FAERS Safety Report 4680942-2 (Version None)
Quarter: 2005Q2

REPORT INFORMATION
  Report Type: 
  Country: None (occurrence: None)
  Receive Date: 20050603
  Receipt Date: 20050525
  Transmission Date: 20051028
  Serious: Yes (Disabling)
  Sender: FDA-Public Use
  Company Number: PHEH2005US06037

PATIENT
  Age: 29 Year
  Sex: Male

DRUGS (3)
  1. INTERFERON ALFA [Concomitant]
     Dosage: 20000000 IU, QD
     Route: 058
     Dates: start: 20050525
  2. INTERFERON ALFA [Concomitant]
     Dosage: 10000000 IU, QD
     Route: 058
     Dates: start: 20020101, end: 20050525
  3. GLEEVEC [Suspect]
     Indication: CHRONIC MYELOID LEUKAEMIA
     Dosage: 400 MG, QD
     Route: 048
     Dates: start: 20020101

REACTIONS (3)
  - DIFFICULTY IN WALKING [None]
  - DISTURBANCE IN ATTENTION [None]
  - VISION BLURRED [None]
